FAERS Safety Report 24896002 (Version 1)
Quarter: 2025Q1

REPORT INFORMATION
  Report Type: Spontaneous
  Country: CZ (occurrence: CZ)
  Receive Date: 20250128
  Receipt Date: 20250128
  Transmission Date: 20250408
  Serious: Yes (Death)
  Sender: PFIZER
  Company Number: CZ-PFIZER INC-202500016039

PATIENT
  Sex: Male

DRUGS (1)
  1. VYNDAQEL [Suspect]
     Active Substance: TAFAMIDIS MEGLUMINE
     Indication: Cardiac amyloidosis
     Dosage: 61 MG, DAILY
     Dates: start: 20190315

REACTIONS (2)
  - Cardiac amyloidosis [Fatal]
  - Disease progression [Fatal]

NARRATIVE: CASE EVENT DATE: 20240101
